FAERS Safety Report 5737494-5 (Version None)
Quarter: 2008Q2

REPORT INFORMATION
  Report Type: 
  Country: None (occurrence: None)
  Receive Date: 20080512
  Receipt Date: 20080512
  Transmission Date: 20081010
  Serious: Yes (Hospitalization)
  Sender: FDA-Public Use
  Company Number: None

PATIENT
  Age: 68 Year
  Sex: Male

DRUGS (1)
  1. FUROSEMIDE [Suspect]
     Indication: CARDIAC FAILURE CONGESTIVE
     Dosage: 20 MG BID PO
     Route: 048

REACTIONS (4)
  - DIZZINESS [None]
  - HYPOTENSION [None]
  - INCORRECT DOSE ADMINISTERED [None]
  - TREATMENT NONCOMPLIANCE [None]
